FAERS Safety Report 12794962 (Version 1)
Quarter: 2016Q3

REPORT INFORMATION
  Report Type: Spontaneous
  Country: US (occurrence: US)
  Receive Date: 20160929
  Receipt Date: 20160929
  Transmission Date: 20161109
  Serious: No
  Sender: FDA-Public Use
  Company Number: US-BAYER-2016-188532

PATIENT
  Age: 40 Year
  Sex: Male

DRUGS (1)
  1. CIPROFLOXACIN. [Suspect]
     Active Substance: CIPROFLOXACIN
     Indication: PERIPHERAL SWELLING
     Dosage: 500 MG, BID
     Dates: start: 20160811, end: 20160821

REACTIONS (2)
  - Off label use [None]
  - Drug ineffective for unapproved indication [None]
